FAERS Safety Report 8558122-X (Version None)
Quarter: 2012Q3

REPORT INFORMATION
  Report Type: 
  Country: None (occurrence: None)
  Receive Date: 20120801
  Receipt Date: 20120726
  Transmission Date: 20120928
  Serious: Yes (Life-Threatening, Hospitalization)
  Sender: FDA-Public Use
  Company Number: IE-PFIZER INC-2012131959

PATIENT
  Age: 65 Year
  Sex: Male
  Weight: 87 kg

DRUGS (9)
  1. ZYVOX [Suspect]
     Indication: STAPHYLOCOCCAL INFECTION
     Dosage: UNK
     Route: 048
     Dates: start: 20110201, end: 20110427
  2. PERINDOPRIL ERBUMINE [Concomitant]
  3. ATENOLOL [Concomitant]
  4. TIOTROPIUM [Concomitant]
  5. PLAVIX [Concomitant]
  6. ZYVOX [Suspect]
     Indication: DIABETIC FOOT
  7. GABAPENTIN [Concomitant]
  8. LEVEMIR [Concomitant]
  9. FLUTICASONE PROPIONATE/SALMETEROL [Concomitant]

REACTIONS (5)
  - DIARRHOEA [None]
  - GENERAL PHYSICAL CONDITION ABNORMAL [None]
  - PANCYTOPENIA [None]
  - NEPHROPATHY TOXIC [None]
  - THROMBOCYTOPENIA [None]
